FAERS Safety Report 10215002 (Version 1)
Quarter: 2014Q2

REPORT INFORMATION
  Report Type: Spontaneous
  Country: IT (occurrence: IT)
  Receive Date: 20140603
  Receipt Date: 20140603
  Transmission Date: 20141212
  Serious: Yes (Other)
  Sender: FDA-Public Use
  Company Number: IT-MYLANLABS-2014S1012174

PATIENT
  Age: 56 Year
  Sex: Male

DRUGS (3)
  1. CITALOPRAM [Suspect]
     Indication: PANIC ATTACK
     Route: 048
     Dates: start: 20131008, end: 20131015
  2. TRIATEC /00885601/ [Concomitant]
     Indication: PRODUCT USED FOR UNKNOWN INDICATION
  3. HALCION [Concomitant]
     Indication: PRODUCT USED FOR UNKNOWN INDICATION

REACTIONS (4)
  - Face oedema [Recovering/Resolving]
  - Flushing [Recovering/Resolving]
  - Mastication disorder [Recovering/Resolving]
  - Trismus [Recovering/Resolving]
